FAERS Safety Report 5473277-1 (Version None)
Quarter: 2007Q4

REPORT INFORMATION
  Report Type: 
  Country: None (occurrence: None)
  Receive Date: 20071001
  Receipt Date: 20070920
  Transmission Date: 20080405
  Serious: Yes (Other)
  Sender: FDA-Public Use
  Company Number: SE-JNJFOC-20051005797

PATIENT
  Age: 48 Year
  Sex: Female
  Weight: 81 kg

DRUGS (16)
  1. REMICADE [Suspect]
     Dosage: FIRST INFUSION
     Route: 042
  2. REMICADE [Suspect]
     Dosage: FIRST INFUSION
     Route: 042
  3. REMICADE [Suspect]
     Indication: ARTHRITIS REACTIVE
     Dosage: FIRST INFUSION
     Route: 042
  4. TENORMIN [Concomitant]
  5. SPIRONOLAKTON [Concomitant]
  6. COAPROVEL [Concomitant]
  7. LEVOTHYROXINE SODIUM [Concomitant]
  8. IBUPROFEN [Concomitant]
  9. PREDNISOLONE [Concomitant]
  10. ALVEDON FORTE [Concomitant]
  11. LANSOPRAZOLE [Concomitant]
  12. METFORMIN HCL [Concomitant]
  13. METHOTREXATE [Concomitant]
  14. FOLACIN [Concomitant]
  15. INSULIN [Concomitant]
  16. NOVORAPID [Concomitant]

REACTIONS (8)
  - FEELING HOT [None]
  - HEADACHE [None]
  - HYPERACUSIS [None]
  - HYPERTENSION [None]
  - INFUSION RELATED REACTION [None]
  - NAUSEA [None]
  - PHOTOPHOBIA [None]
  - VOMITING [None]
